FAERS Safety Report 9199716 (Version 1)
Quarter: 2013Q1

REPORT INFORMATION
  Report Type: Report from Study
  Country: GB (occurrence: GB)
  Receive Date: 20130329
  Receipt Date: 20130329
  Transmission Date: 20140127
  Serious: Yes (Hospitalization)
  Sender: FDA-Public Use
  Company Number: GB-PFIZER INC-2013095973

PATIENT
  Age: 44 Year
  Sex: Female
  Weight: 52.1 kg

DRUGS (8)
  1. EPIRUBICIN HCL [Suspect]
     Indication: BREAST CANCER
     Dosage: 144 MG, UNK
     Route: 042
     Dates: start: 20130225
  2. CYCLOPHOSPHAMIDE [Suspect]
     Indication: BREAST CANCER
     Dosage: 740 MG, UNK
     Route: 042
     Dates: start: 20130225
  3. FLUOROURACIL [Suspect]
     Dosage: 750 MG, UNK
     Route: 042
     Dates: start: 20130225
  4. PEGFILGRASTIM [Concomitant]
     Dosage: 6 MG DAILY
     Dates: start: 20130226, end: 20130226
  5. DEXAMETHASONE [Concomitant]
     Dosage: 8 MG, DAILY
     Dates: start: 20130226, end: 20130227
  6. APREPITANT [Concomitant]
     Dosage: DAILY
     Dates: start: 20130225
  7. METOCLOPRAMIDE [Concomitant]
     Dosage: 10 MG, DAILY
     Dates: start: 20130204
  8. ONDANSETRON [Concomitant]
     Dosage: 16 MG, DAILY
     Dates: start: 20130225

REACTIONS (1)
  - Dyspnoea [Recovered/Resolved]
